FAERS Safety Report 16734327 (Version 1)
Quarter: 2019Q4

REPORT INFORMATION
  Report Type: Spontaneous
  Country: US (occurrence: US)
  Receive Date: 20190822
  Receipt Date: 20190822
  Transmission Date: 20200122
  Serious: Yes (Hospitalization)
  Sender: FDA-Public Use
  Company Number: None

PATIENT
  Age: 71 Year
  Sex: Female

DRUGS (15)
  1. LEVOFLOXACIN. [Concomitant]
     Active Substance: LEVOFLOXACIN
  2. CEFDINIR. [Concomitant]
     Active Substance: CEFDINIR
  3. DICLOFENAC GEL [Concomitant]
     Active Substance: DICLOFENAC
  4. MELOXICAM. [Concomitant]
     Active Substance: MELOXICAM
  5. LACTULOSE. [Concomitant]
     Active Substance: LACTULOSE
  6. METHYLPRED [Concomitant]
     Active Substance: METHYLPREDNISOLONE
  7. SUPREP BOWEL [Concomitant]
  8. PROMETHAZINE [Concomitant]
     Active Substance: PROMETHAZINE HYDROCHLORIDE
  9. FLUCONAZOLE. [Concomitant]
     Active Substance: FLUCONAZOLE
  10. REPATHA [Suspect]
     Active Substance: EVOLOCUMAB
     Indication: PRODUCT USED FOR UNKNOWN INDICATION
     Dosage: ?          OTHER FREQUENCY:ONCE A MONTH;?
     Route: 058
     Dates: start: 20190319
  11. WAL-TUSSIN [Concomitant]
     Active Substance: DEXTROMETHORPHAN HYDROBROMIDE
  12. ANUCORT-HC [Concomitant]
     Active Substance: HYDROCORTISONE ACETATE
  13. CLOTRIMAZOLE. [Concomitant]
     Active Substance: CLOTRIMAZOLE
  14. AZITHROMYCIN ANHYDROUS. [Concomitant]
     Active Substance: AZITHROMYCIN ANHYDROUS
  15. PANTOPRAZOLE [Concomitant]
     Active Substance: PANTOPRAZOLE

REACTIONS (4)
  - Feeling abnormal [None]
  - Dizziness [None]
  - Gait inability [None]
  - Pneumonia [None]
